FAERS Safety Report 4430616-8 (Version None)
Quarter: 2004Q3

REPORT INFORMATION
  Report Type: 
  Country: None (occurrence: None)
  Receive Date: 20040819
  Receipt Date: 20040819
  Transmission Date: 20050211
  Serious: Yes (Hospitalization)
  Sender: FDA-Public Use
  Company Number: None

PATIENT
  Sex: Female
  Weight: 113.3993 kg

DRUGS (20)
  1. ENOXAPARIN  80 MG  SC BID [Suspect]
     Indication: ATRIAL FIBRILLATION
     Dosage: 80 MG SC BID 100 MG SC BID
     Route: 058
     Dates: start: 20040626, end: 20040701
  2. ENOXAPARIN  80 MG  SC BID [Suspect]
     Indication: DEEP VENOUS THROMBOSIS PROPHYLAXIS
     Dosage: 80 MG SC BID 100 MG SC BID
     Route: 058
     Dates: start: 20040626, end: 20040701
  3. ENOXAPARIN  80 MG  SC BID [Suspect]
     Indication: ATRIAL FIBRILLATION
     Dosage: 80 MG SC BID 100 MG SC BID
     Route: 058
     Dates: start: 20040706, end: 20040719
  4. ENOXAPARIN  80 MG  SC BID [Suspect]
     Indication: DEEP VENOUS THROMBOSIS PROPHYLAXIS
     Dosage: 80 MG SC BID 100 MG SC BID
     Route: 058
     Dates: start: 20040706, end: 20040719
  5. ACIDOPHILUS [Concomitant]
  6. ALFUZOSIN [Concomitant]
  7. ALLOPURINOL [Concomitant]
  8. ASPIRIN [Concomitant]
  9. DIGOXIN [Concomitant]
  10. ZETIA [Concomitant]
  11. FELODIPINE [Concomitant]
  12. FOSINOPRIL SODIUM [Concomitant]
  13. FUROSEMIDE [Concomitant]
  14. GABAPENTIN [Concomitant]
  15. GLIPIZIDE [Concomitant]
  16. NPH INSULIN [Concomitant]
  17. METOPROLOL [Concomitant]
  18. KCL TAB [Concomitant]
  19. SIMVASTATIN [Concomitant]
  20. TERAZOSIN HCL [Concomitant]

REACTIONS (10)
  - ANAEMIA [None]
  - CARDIAC FAILURE CONGESTIVE [None]
  - CLOSTRIDIUM COLITIS [None]
  - HYPOTENSION [None]
  - ISCHAEMIA [None]
  - LOWER GASTROINTESTINAL HAEMORRHAGE [None]
  - MENTAL STATUS CHANGES [None]
  - MYOCARDIAL INFARCTION [None]
  - RENAL IMPAIRMENT [None]
  - RETROPERITONEAL HAEMORRHAGE [None]
